FAERS Safety Report 9628980 (Version 2)
Quarter: 2013Q4

REPORT INFORMATION
  Report Type: Spontaneous
  Country: US (occurrence: US)
  Receive Date: 20131017
  Receipt Date: 20131114
  Transmission Date: 20140711
  Serious: Yes (Other)
  Sender: FDA-Public Use
  Company Number: US-IPSEN BIOPHARMACEUTICALS, INC.-2013-4458

PATIENT
  Age: 63 Year
  Sex: Female
  Weight: 71.5 kg

DRUGS (7)
  1. DYSPORT [Suspect]
     Indication: SKIN WRINKLING
     Dosage: NOT REPORTED
     Route: 065
     Dates: start: 20130927, end: 20130927
  2. DYSPORT [Suspect]
     Indication: SKIN WRINKLING
  3. DYSPORT [Suspect]
     Indication: SKIN WRINKLING
  4. DYSPORT [Suspect]
     Indication: SKIN WRINKLING
  5. DYSPORT [Suspect]
     Indication: OFF LABEL USE
  6. RADIUS [Concomitant]
     Indication: SKIN COSMETIC PROCEDURE
     Route: 065
  7. VITAMINS [Concomitant]
     Indication: PRODUCT USED FOR UNKNOWN INDICATION
     Dosage: NOT REPORTED
     Route: 065

REACTIONS (3)
  - Corneal infection [Unknown]
  - Wrong technique in drug usage process [Unknown]
  - Dysarthria [Recovered/Resolved]
